FAERS Safety Report 9107354 (Version 9)
Quarter: 2016Q4

REPORT INFORMATION
  Report Type: Spontaneous
  Country: US (occurrence: US)
  Receive Date: 20130221
  Receipt Date: 20161006
  Transmission Date: 20170207
  Serious: Yes (Hospitalization, Disabling, Other)
  Sender: FDA-Public Use
  Company Number: US-009507513-1302USA009097

PATIENT
  Sex: Female
  Weight: 63.49 kg

DRUGS (13)
  1. CHOLECALCIFEROL [Concomitant]
     Active Substance: CHOLECALCIFEROL
     Dosage: 1000 IU, QD
     Route: 065
     Dates: start: 1995
  2. FOSAMAX [Suspect]
     Active Substance: ALENDRONATE SODIUM
     Dosage: 70 MG, QW
     Route: 048
     Dates: start: 200501, end: 200806
  3. ALENDRONATE SODIUM. [Suspect]
     Active Substance: ALENDRONATE SODIUM
     Indication: OSTEOPOROSIS
     Dosage: 70 MG, QW
     Route: 048
     Dates: start: 20080625, end: 201008
  4. CITRACAL [Concomitant]
     Active Substance: CALCIUM CITRATE
     Dosage: 630 MG, BID-TID
     Route: 065
     Dates: start: 1995
  5. CORTICOSTEROIDS (UNSPECIFIED) [Concomitant]
     Active Substance: UNSPECIFIED INGREDIENT
     Dosage: UNK
     Route: 065
     Dates: start: 1990
  6. HORMONES (UNSPECIFIED) [Concomitant]
     Active Substance: UNSPECIFIED INGREDIENT
     Dosage: UNK
     Route: 065
     Dates: start: 1990, end: 2002
  7. CELEBREX [Concomitant]
     Active Substance: CELECOXIB
     Indication: RHEUMATOID ARTHRITIS
     Dosage: 200 MG, BID
     Route: 048
     Dates: start: 2001
  8. FOSAMAX [Suspect]
     Active Substance: ALENDRONATE SODIUM
     Dosage: 70 MG, QW
     Route: 048
     Dates: start: 200110, end: 200403
  9. FOSAMAX [Suspect]
     Active Substance: ALENDRONATE SODIUM
     Dosage: 35 MG, QW
     Route: 048
     Dates: start: 20040309, end: 200501
  10. PLAQUENIL [Concomitant]
     Active Substance: HYDROXYCHLOROQUINE SULFATE
     Indication: SYSTEMIC LUPUS ERYTHEMATOSUS
     Dosage: 200 MG, BID
     Route: 048
     Dates: start: 2000
  11. FOSAMAX [Suspect]
     Active Substance: ALENDRONATE SODIUM
     Indication: OSTEOPOROSIS
     Dosage: 10 MG, QD
     Route: 048
     Dates: start: 200101, end: 200110
  12. VITAMINS (UNSPECIFIED) [Concomitant]
     Active Substance: VITAMINS
     Dosage: UNK, QD
     Route: 065
     Dates: start: 1995
  13. METHOTREXATE. [Concomitant]
     Active Substance: METHOTREXATE
     Indication: RHEUMATOID ARTHRITIS
     Dosage: 2.5 MG, 8 QW
     Route: 048
     Dates: start: 2001

REACTIONS (26)
  - Breast cancer [Unknown]
  - Fracture nonunion [Recovered/Resolved]
  - Bursitis [Recovered/Resolved]
  - Medical device removal [Unknown]
  - Intramedullary rod insertion [Unknown]
  - Synovitis [Unknown]
  - Bone graft [Unknown]
  - Fluid retention [Unknown]
  - Overweight [Unknown]
  - Device breakage [Unknown]
  - Cystitis [Unknown]
  - Femur fracture [Recovered/Resolved]
  - Depression [Unknown]
  - Bursitis [Not Recovered/Not Resolved]
  - Intramedullary rod insertion [Unknown]
  - Adverse event [Unknown]
  - Foot fracture [Unknown]
  - Osteoarthritis [Unknown]
  - Bursitis [Unknown]
  - Depression [Unknown]
  - Anxiety [Unknown]
  - Hand fracture [Unknown]
  - Radiotherapy [Unknown]
  - Ulcer [Unknown]
  - Pain [Unknown]
  - Muscular weakness [Unknown]

NARRATIVE: CASE EVENT DATE: 2002
